FAERS Safety Report 19978173 (Version 1)
Quarter: 2021Q4

REPORT INFORMATION
  Report Type: Spontaneous
  Country: US (occurrence: US)
  Receive Date: 20211019
  Receipt Date: 20211019
  Transmission Date: 20220303
  Serious: Yes (Hospitalization)
  Sender: FDA-Public Use
  Company Number: None

PATIENT
  Age: 63 Year
  Sex: Male
  Weight: 112 kg

DRUGS (1)
  1. DOXORUBICIN HYDROCHLORIDE [Suspect]
     Active Substance: DOXORUBICIN HYDROCHLORIDE
     Indication: Leiomyosarcoma metastatic
     Dosage: ?          OTHER ROUTE:IV
     Route: 042
     Dates: start: 20210115, end: 20210117

REACTIONS (6)
  - Tachycardia [None]
  - Toxic cardiomyopathy [None]
  - Cardiac failure acute [None]
  - Condition aggravated [None]
  - Oedema peripheral [None]
  - Arrhythmia [None]

NARRATIVE: CASE EVENT DATE: 20210717
